FAERS Safety Report 8567774-X (Version None)
Quarter: 2012Q3

REPORT INFORMATION
  Report Type: 
  Country: None (occurrence: None)
  Receive Date: 20120803
  Receipt Date: 20120724
  Transmission Date: 20120928
  Serious: Yes (Hospitalization)
  Sender: FDA-Public Use
  Company Number: CO-ELI_LILLY_AND_COMPANY-CO201207008511

PATIENT
  Age: 40 Year
  Sex: Female

DRUGS (3)
  1. LOVASTATIN [Concomitant]
  2. LOSARTAN POTASSIUM [Concomitant]
  3. HUMULIN R [Suspect]
     Dosage: 4 IU, QD
     Dates: start: 20120501

REACTIONS (2)
  - LOCALISED INFECTION [None]
  - HYPERGLYCAEMIA [None]
